FAERS Safety Report 10930779 (Version 4)
Quarter: 2015Q4

REPORT INFORMATION
  Report Type: Spontaneous
  Country: US (occurrence: US)
  Receive Date: 20150319
  Receipt Date: 20151106
  Transmission Date: 20160304
  Serious: No
  Sender: FDA-Public Use
  Company Number: US-GILEAD-2015-0142694

PATIENT
  Sex: Female
  Weight: 44.44 kg

DRUGS (3)
  1. RANEXA [Suspect]
     Active Substance: RANOLAZINE
     Indication: PRODUCT USED FOR UNKNOWN INDICATION
     Dosage: 500 MG, UNK
     Route: 065
     Dates: start: 201408
  2. RISACAL-D [Concomitant]
     Indication: PRODUCT USED FOR UNKNOWN INDICATION
     Dosage: 500 MG, BID
     Route: 048
  3. RANEXA [Suspect]
     Active Substance: RANOLAZINE
     Dosage: 500 MG, BID
     Route: 048

REACTIONS (7)
  - Chest discomfort [Unknown]
  - Gastrointestinal sounds abnormal [Unknown]
  - Asthenia [Unknown]
  - Fear [Unknown]
  - Dizziness [Unknown]
  - Vomiting [Unknown]
  - Abdominal pain upper [Unknown]
